FAERS Safety Report 9995474 (Version 1)
Quarter: 2014Q1

REPORT INFORMATION
  Report Type: Spontaneous
  Country: US (occurrence: None)
  Receive Date: 20140218
  Receipt Date: 20140218
  Transmission Date: 20141002
  Serious: No
  Sender: FDA-Public Use
  Company Number: 1000050849

PATIENT
  Sex: Female

DRUGS (1)
  1. VIIBRYD [Suspect]
     Route: 048
     Dates: start: 2013, end: 201310

REACTIONS (2)
  - Dry mouth [None]
  - Drug ineffective [None]
